FAERS Safety Report 21229676 (Version 2)
Quarter: 2022Q3

REPORT INFORMATION
  Report Type: Report from Study
  Country: BR (occurrence: BR)
  Receive Date: 20220818
  Receipt Date: 20220906
  Transmission Date: 20221026
  Serious: Yes (Hospitalization, Other)
  Sender: FDA-Public Use
  Company Number: BR-UCBSA-2022047148

PATIENT
  Age: 42 Year
  Sex: Female
  Weight: 80 kg

DRUGS (9)
  1. CERTOLIZUMAB PEGOL [Suspect]
     Active Substance: CERTOLIZUMAB PEGOL
     Indication: Ankylosing spondylitis
     Dosage: 400 MILLIGRAM, EV 30 DAYS
     Route: 058
     Dates: start: 202111
  2. CERTOLIZUMAB PEGOL [Suspect]
     Active Substance: CERTOLIZUMAB PEGOL
     Dosage: UNK
     Route: 058
     Dates: start: 2022, end: 2022
  3. CERTOLIZUMAB PEGOL [Suspect]
     Active Substance: CERTOLIZUMAB PEGOL
     Dosage: UNK
     Route: 058
     Dates: start: 2022, end: 2022
  4. METHOTREXATE [Concomitant]
     Active Substance: METHOTREXATE
     Indication: Ankylosing spondylitis
     Dosage: 15 MILLILITER, UNK
     Route: 048
     Dates: start: 202111
  5. RIVOTRIL [Concomitant]
     Active Substance: CLONAZEPAM
     Indication: Ankylosing spondylitis
     Dosage: 20 DROP, ONCE DAILY (QD)
     Route: 048
     Dates: start: 2010
  6. CODEINE [Concomitant]
     Active Substance: CODEINE
     Indication: Pain
     Dosage: 1 DOSAGE FORM, 3X/DAY (TID)
     Route: 048
  7. DOMPERIDONE [Concomitant]
     Active Substance: DOMPERIDONE
     Indication: Gastrooesophageal reflux disease
     Dosage: 1 DOSAGE FORM, ONCE DAILY (QD)
     Route: 048
  8. TOPIRAMATE [Concomitant]
     Active Substance: TOPIRAMATE
     Indication: Bipolar disorder
  9. TOPIRAMATE [Concomitant]
     Active Substance: TOPIRAMATE
     Indication: Migraine

REACTIONS (9)
  - Hip surgery [Recovered/Resolved]
  - Hysterectomy [Recovered/Resolved]
  - Postoperative wound infection [Unknown]
  - Urinary tract infection [Recovered/Resolved]
  - Knee operation [Recovered/Resolved]
  - Bipolar disorder [Recovering/Resolving]
  - Sacral pain [Recovering/Resolving]
  - Neck pain [Recovering/Resolving]
  - Migraine [Recovering/Resolving]

NARRATIVE: CASE EVENT DATE: 20211101
